FAERS Safety Report 16347541 (Version 1)
Quarter: 2019Q2

REPORT INFORMATION
  Report Type: Spontaneous
  Country: PT (occurrence: PT)
  Receive Date: 20190523
  Receipt Date: 20190523
  Transmission Date: 20190711
  Serious: Yes (Life-Threatening, Hospitalization, Other)
  Sender: FDA-Public Use
  Company Number: PT-AUROBINDO-AUR-APL-2019-026966

PATIENT

DRUGS (1)
  1. CARVEDILOL TABLETS [Suspect]
     Active Substance: CARVEDILOL
     Indication: ACUTE MYOCARDIAL INFARCTION
     Dosage: 6.25 MILLIGRAM, TWO TIMES A DAY, 6.25 MG 12 / 12H
     Route: 048
     Dates: start: 20150829, end: 20180720

REACTIONS (1)
  - Atrioventricular block complete [Recovered/Resolved]

NARRATIVE: CASE EVENT DATE: 20180720
